FAERS Safety Report 4422891-0 (Version None)
Quarter: 2004Q3

REPORT INFORMATION
  Report Type: 
  Country: None (occurrence: None)
  Receive Date: 20040811
  Receipt Date: 20040802
  Transmission Date: 20050211
  Serious: Yes (Death)
  Sender: FDA-Public Use
  Company Number: US-JNJFOC-20040800607

PATIENT
  Age: 52 Year
  Sex: Male
  Weight: 79.38 kg

DRUGS (1)
  1. DURAGESIC [Suspect]
     Route: 062

REACTIONS (2)
  - DRUG TOXICITY [None]
  - MEDICATION ERROR [None]
